FAERS Safety Report 16764159 (Version 1)
Quarter: 2019Q3

REPORT INFORMATION
  Report Type: Spontaneous
  Country: US (occurrence: US)
  Receive Date: 20190902
  Receipt Date: 20190902
  Transmission Date: 20191005
  Serious: Yes (Hospitalization)
  Sender: FDA-Public Use
  Company Number: US-009507513-1908USA010642

PATIENT
  Age: 57 Year
  Sex: Female
  Weight: 63.6 kg

DRUGS (5)
  1. METOPROLOL TARTRATE. [Suspect]
     Active Substance: METOPROLOL TARTRATE
     Indication: BLOOD PRESSURE INCREASED
     Dosage: DOSAGE 10
     Dates: start: 201310, end: 2018
  2. PLAVIX [Suspect]
     Active Substance: CLOPIDOGREL BISULFATE
     Dosage: UNK
     Dates: start: 2016
  3. METFORMIN [Suspect]
     Active Substance: METFORMIN HYDROCHLORIDE
     Indication: DIABETES MELLITUS
     Dosage: DOSAGE 100
     Dates: start: 201101, end: 2011
  4. CARVEDILOL. [Suspect]
     Active Substance: CARVEDILOL
     Indication: BLOOD PRESSURE INCREASED
     Dosage: DOSAGE 12.5
     Dates: start: 201010, end: 2011
  5. PRINIVIL [Suspect]
     Active Substance: LISINOPRIL
     Indication: BLOOD PRESSURE INCREASED
     Dosage: DOSAGE 10
     Dates: start: 201010, end: 2011

REACTIONS (14)
  - Stent placement [Unknown]
  - Peripheral swelling [Unknown]
  - Hypoaesthesia [Unknown]
  - Diarrhoea [Unknown]
  - Alopecia [Unknown]
  - Leg amputation [Not Recovered/Not Resolved]
  - Restless legs syndrome [Unknown]
  - Muscle spasms [Unknown]
  - Abdominal pain upper [Unknown]
  - Cough [Unknown]
  - Arthralgia [Unknown]
  - Drug ineffective for unapproved indication [Unknown]
  - Vision blurred [Unknown]
  - Rash generalised [Unknown]

NARRATIVE: CASE EVENT DATE: 201010
